FAERS Safety Report 24642233 (Version 1)
Quarter: 2024Q4

REPORT INFORMATION
  Report Type: Report from Study
  Country: CA (occurrence: CA)
  Receive Date: 20241120
  Receipt Date: 20241120
  Transmission Date: 20250114
  Serious: Yes (Other)
  Sender: TAKEDA
  Company Number: CA-TAKEDA-2024TUS113698

PATIENT
  Sex: Female
  Weight: 49 kg

DRUGS (2)
  1. VEDOLIZUMAB [Suspect]
     Active Substance: VEDOLIZUMAB
     Indication: Colitis ulcerative
     Dosage: 300 MILLIGRAM
  2. Salofalk [Concomitant]
     Indication: Colitis ulcerative
     Dosage: UNK UNK, QD
     Dates: start: 202408

REACTIONS (2)
  - Abortion spontaneous [Unknown]
  - Pregnancy [Unknown]
